FAERS Safety Report 10885199 (Version 1)
Quarter: 2015Q1

REPORT INFORMATION
  Report Type: Spontaneous
  Country: US (occurrence: US)
  Receive Date: 20150304
  Receipt Date: 20150304
  Transmission Date: 20150721
  Serious: Yes (Death)
  Sender: FDA-Public Use
  Company Number: US-BANPHARM-20153616

PATIENT
  Age: 57 Year
  Sex: Female

DRUGS (5)
  1. VENLAFAXINE [Suspect]
     Active Substance: VENLAFAXINE HYDROCHLORIDE
  2. DIPHENHYDRAMINE UNKNOWN PRODUCT [Suspect]
     Active Substance: DIPHENHYDRAMINE
  3. METRONIDAZOLE. [Suspect]
     Active Substance: METRONIDAZOLE
  4. ETHANOL [Suspect]
     Active Substance: ALCOHOL
  5. BENZODIAZEPINE [Suspect]
     Active Substance: BENZODIAZEPINE

REACTIONS (2)
  - Completed suicide [Fatal]
  - Exposure via ingestion [None]
